FAERS Safety Report 21027866 (Version 3)
Quarter: 2022Q3

REPORT INFORMATION
  Report Type: Spontaneous
  Country: US (occurrence: US)
  Receive Date: 20220630
  Receipt Date: 20220811
  Transmission Date: 20221026
  Serious: Yes (Hospitalization)
  Sender: FDA-Public Use
  Company Number: US-KARYOPHARM-2022KPT000621

PATIENT

DRUGS (24)
  1. XPOVIO [Suspect]
     Active Substance: SELINEXOR
     Indication: Plasma cell myeloma
     Dosage: 100 MG, WEEKLY
     Route: 048
     Dates: start: 20220527, end: 2022
  2. XPOVIO [Suspect]
     Active Substance: SELINEXOR
     Dosage: 80 MG, WEEKLY
     Route: 048
     Dates: start: 2022, end: 2022
  3. ATORVASTATIN CALCIUM [Concomitant]
     Active Substance: ATORVASTATIN CALCIUM
  4. ATOVAQUONE [Concomitant]
     Active Substance: ATOVAQUONE
  5. VELCADE [Concomitant]
     Active Substance: BORTEZOMIB
  6. BRIMONIDINE TARTRATE [Concomitant]
     Active Substance: BRIMONIDINE TARTRATE
  7. DEXAMETHASONE [Concomitant]
     Active Substance: DEXAMETHASONE
  8. DORZOLAMIDE HYDROCHLORIDE [Concomitant]
     Active Substance: DORZOLAMIDE HYDROCHLORIDE
  9. FOLIC ACID [Concomitant]
     Active Substance: FOLIC ACID
  10. GABAPENTIN [Concomitant]
     Active Substance: GABAPENTIN
  11. HYDROMORPHONE [Concomitant]
     Active Substance: HYDROMORPHONE
  12. LACTULOSE [Concomitant]
     Active Substance: LACTULOSE
  13. LIDOCAINE [Concomitant]
     Active Substance: LIDOCAINE
  14. LIDOCAINE AND PRILOCAINE [Concomitant]
     Active Substance: LIDOCAINE\PRILOCAINE
  15. LISINOPRIL [Concomitant]
     Active Substance: LISINOPRIL
  16. LORAZEPAM [Concomitant]
     Active Substance: LORAZEPAM
  17. METHADONE HYDROCHLORIDE [Concomitant]
     Active Substance: METHADONE HYDROCHLORIDE
  18. METHYLPHENIDATE [Concomitant]
     Active Substance: METHYLPHENIDATE
  19. OMEPRAZOLE [Concomitant]
     Active Substance: OMEPRAZOLE
  20. PROCHLORPERAZINE MALEATE [Concomitant]
     Active Substance: PROCHLORPERAZINE MALEATE
  21. TRAZODONE [Concomitant]
     Active Substance: TRAZODONE HYDROCHLORIDE
  22. VALACYCLOVIR HYDROCHLORIDE [Concomitant]
     Active Substance: VALACYCLOVIR HYDROCHLORIDE
  23. LANTUS [Concomitant]
     Active Substance: INSULIN GLARGINE
  24. ZOFRAN [Concomitant]
     Active Substance: ONDANSETRON HYDROCHLORIDE

REACTIONS (9)
  - Nausea [Recovering/Resolving]
  - Diarrhoea [Recovering/Resolving]
  - Depression [Not Recovered/Not Resolved]
  - Eye haemorrhage [Unknown]
  - Intraocular pressure increased [Unknown]
  - Bone pain [Unknown]
  - Chest pain [Unknown]
  - Plasma cell myeloma [Unknown]
  - Fatigue [Unknown]

NARRATIVE: CASE EVENT DATE: 20220101
